FAERS Safety Report 24238232 (Version 1)
Quarter: 2024Q3

REPORT INFORMATION
  Report Type: Spontaneous
  Country: US (occurrence: US)
  Receive Date: 20240822
  Receipt Date: 20240822
  Transmission Date: 20241017
  Serious: No
  Sender: BIOGEN
  Company Number: US-BIOGEN-2024BI01244252

PATIENT
  Sex: Female

DRUGS (1)
  1. TYSABRI [Suspect]
     Active Substance: NATALIZUMAB
     Indication: Multiple sclerosis
     Route: 050
     Dates: start: 20200706

REACTIONS (6)
  - Malaise [Not Recovered/Not Resolved]
  - Infusion site bruising [Unknown]
  - Injection site scar [Unknown]
  - Poor venous access [Unknown]
  - Feeling abnormal [Unknown]
  - Withdrawal syndrome [Unknown]
